FAERS Safety Report 5118044-3 (Version None)
Quarter: 2006Q3

REPORT INFORMATION
  Report Type: 
  Country: None (occurrence: None)
  Receive Date: 20060929
  Receipt Date: 20060926
  Transmission Date: 20061208
  Serious: Yes (Death)
  Sender: FDA-Public Use
  Company Number: AU-ROXANE LABORATORIES, INC-2006-DE-05144GD

PATIENT
  Age: 54 Year
  Sex: Female

DRUGS (5)
  1. MORPHINE [Suspect]
     Indication: BREAKTHROUGH PAIN
     Dosage: 2.5 - 5 MG
     Route: 042
  2. MORPHINE [Suspect]
     Route: 042
  3. TRAMADOL HCL [Suspect]
     Indication: BREAKTHROUGH PAIN
     Route: 042
  4. TRAMADOL HCL [Suspect]
     Route: 042
  5. AMITRIPTYLINE HCL [Suspect]
     Indication: ANALGESIC EFFECT
     Route: 048

REACTIONS (6)
  - AGITATION [None]
  - DEPRESSED LEVEL OF CONSCIOUSNESS [None]
  - DRUG INEFFECTIVE [None]
  - MYOCLONUS [None]
  - NARCOTIC INTOXICATION [None]
  - STAPHYLOCOCCAL SEPSIS [None]
